FAERS Safety Report 15498673 (Version 1)
Quarter: 2018Q4

REPORT INFORMATION
  Report Type: Spontaneous
  Country: US (occurrence: US)
  Receive Date: 20181015
  Receipt Date: 20181015
  Transmission Date: 20190205
  Serious: No
  Sender: FDA-Public Use
  Company Number: US-BAYER-2018-191716

PATIENT
  Age: 34 Year
  Sex: Female

DRUGS (1)
  1. MIRENA [Suspect]
     Active Substance: LEVONORGESTREL
     Indication: UTERINE HAEMORRHAGE
     Dosage: 20 MCG/24HR, CONT
     Route: 015
     Dates: start: 20180724, end: 20180724

REACTIONS (5)
  - Complication of device insertion [None]
  - Post procedural discomfort [None]
  - Off label use [None]
  - Device deployment issue [None]
  - Product use in unapproved indication [None]

NARRATIVE: CASE EVENT DATE: 20180724
